FAERS Safety Report 8501264-5 (Version None)
Quarter: 2012Q3

REPORT INFORMATION
  Report Type: 
  Country: None (occurrence: None)
  Receive Date: 20120710
  Receipt Date: 20120629
  Transmission Date: 20120928
  Serious: No
  Sender: FDA-Public Use
  Company Number: US-TEVA-346194USA

PATIENT
  Sex: Female
  Weight: 51.756 kg

DRUGS (2)
  1. SERTRALINE HYDROCHLORIDE [Concomitant]
  2. AZILECT [Suspect]
     Indication: PARKINSON'S DISEASE
     Route: 048

REACTIONS (2)
  - DENTAL CARIES [None]
  - DEVICE BREAKAGE [None]
